FAERS Safety Report 15609230 (Version 1)
Quarter: 2018Q4

REPORT INFORMATION
  Report Type: Spontaneous
  Country: US (occurrence: US)
  Receive Date: 20181112
  Receipt Date: 20181112
  Transmission Date: 20190205
  Serious: No
  Sender: FDA-Public Use
  Company Number: US-EX USA HOLDINGS-EXHL20180633

PATIENT
  Age: 28 Year
  Sex: Female

DRUGS (1)
  1. BENZNIDAZOLE. [Suspect]
     Active Substance: BENZNIDAZOLE
     Indication: CHAGAS^ CARDIOMYOPATHY
     Dosage: 1.5 TABS (150 MG)
     Route: 048
     Dates: start: 201810, end: 201810

REACTIONS (4)
  - Drug hypersensitivity [Unknown]
  - Rash [Unknown]
  - Product use issue [None]
  - Pruritus [Unknown]

NARRATIVE: CASE EVENT DATE: 201810
